FAERS Safety Report 11613589 (Version 1)
Quarter: 2015Q4

REPORT INFORMATION
  Report Type: Spontaneous
  Country: US (occurrence: US)
  Receive Date: 20151008
  Receipt Date: 20151008
  Transmission Date: 20160304
  Serious: Yes (Other)
  Sender: FDA-Public Use
  Company Number: US-INCYTE CORPORATION-2015IN005016

PATIENT
  Age: 67 Year
  Sex: Male

DRUGS (8)
  1. CARVEDILOL. [Concomitant]
     Active Substance: CARVEDILOL
  2. MINOCYCLINE\MINOCYCLINE HYDROCHLORIDE [Concomitant]
     Active Substance: MINOCYCLINE\MINOCYCLINE HYDROCHLORIDE
  3. ELIQUIS [Concomitant]
     Active Substance: APIXABAN
  4. RAMIPRIL. [Concomitant]
     Active Substance: RAMIPRIL
  5. GABAPENTIN. [Concomitant]
     Active Substance: GABAPENTIN
     Indication: NERVE INJURY
  6. ASPIRIN. [Concomitant]
     Active Substance: ASPIRIN
     Dosage: 81 MG
  7. JAKAFI [Suspect]
     Active Substance: RUXOLITINIB
     Dosage: 20 MG, BID
     Route: 048
     Dates: start: 20141224
  8. PRAVASTATIN [Concomitant]
     Active Substance: PRAVASTATIN\PRAVASTATIN SODIUM

REACTIONS (3)
  - Ocular hyperaemia [Unknown]
  - Dry eye [Unknown]
  - Skin cancer [Unknown]

NARRATIVE: CASE EVENT DATE: 20150923
